FAERS Safety Report 19314051 (Version 2)
Quarter: 2021Q2

REPORT INFORMATION
  Report Type: Spontaneous
  Country: US (occurrence: US)
  Receive Date: 20210527
  Receipt Date: 20210607
  Transmission Date: 20210717
  Serious: No
  Sender: FDA-Public Use
  Company Number: US-AMGEN-USASP2021078437

PATIENT
  Age: 71 Year
  Sex: Female
  Weight: 118.37 kg

DRUGS (2)
  1. REPATHA [Suspect]
     Active Substance: EVOLOCUMAB
     Dosage: 140 MILLIGRAM
     Route: 058
     Dates: start: 20161026
  2. REPATHA [Suspect]
     Active Substance: EVOLOCUMAB
     Indication: HYPERCHOLESTEROLAEMIA
     Dosage: 420 MILLIGRAM, QMO
     Route: 065
     Dates: start: 2018

REACTIONS (2)
  - Wrong technique in product usage process [Unknown]
  - Device difficult to use [Unknown]

NARRATIVE: CASE EVENT DATE: 20210517
